FAERS Safety Report 14994625 (Version 1)
Quarter: 2018Q2

REPORT INFORMATION
  Report Type: Spontaneous
  Country: FR (occurrence: FR)
  Receive Date: 20180611
  Receipt Date: 20180611
  Transmission Date: 20180711
  Serious: Yes (Death, Hospitalization)
  Sender: FDA-Public Use
  Company Number: FR-MYLANLABS-2018M1041496

PATIENT
  Age: 71 Year
  Weight: 85 kg

DRUGS (1)
  1. LEPONEX 25 MG [Suspect]
     Active Substance: CLOZAPINE
     Indication: HALLUCINATION
     Dosage: 12.5 MG, QD
     Route: 048
     Dates: start: 201711, end: 20171218

REACTIONS (2)
  - Cerebrovascular accident [Fatal]
  - Hypothermia [Fatal]

NARRATIVE: CASE EVENT DATE: 20171217
